FAERS Safety Report 19717855 (Version 2)
Quarter: 2021Q3

REPORT INFORMATION
  Report Type: Spontaneous
  Country: NL (occurrence: NL)
  Receive Date: 20210819
  Receipt Date: 20210824
  Transmission Date: 20211014
  Serious: Yes (Other)
  Sender: FDA-Public Use
  Company Number: NL-BAYER-2021-193261

PATIENT
  Sex: Female

DRUGS (1)
  1. MIRENA [Suspect]
     Active Substance: LEVONORGESTREL
     Dosage: 20 ?G, CONT
     Route: 015

REACTIONS (5)
  - Device breakage [Not Recovered/Not Resolved]
  - Complication of device removal [None]
  - Device difficult to use [None]
  - Embedded device [Not Recovered/Not Resolved]
  - Procedural pain [None]
